FAERS Safety Report 4277956-3 (Version None)
Quarter: 2004Q1

REPORT INFORMATION
  Report Type: 
  Country: None (occurrence: None)
  Receive Date: 20040121
  Receipt Date: 20031102
  Transmission Date: 20041129
  Serious: Yes (Hospitalization)
  Sender: FDA-Public Use
  Company Number: 2003-01-3849

PATIENT
  Age: 30 Month
  Sex: Male

DRUGS (1)
  1. SUBUTEX [Suspect]
     Indication: ILL-DEFINED DISORDER
     Dosage: 2MG ORAL
     Route: 048

REACTIONS (3)
  - ACCIDENTAL EXPOSURE [None]
  - ASTHENIA [None]
  - EYE ROLLING [None]
